FAERS Safety Report 11209140 (Version 2)
Quarter: 2015Q2

REPORT INFORMATION
  Report Type: Spontaneous
  Country: FI (occurrence: FI)
  Receive Date: 20150622
  Receipt Date: 20150623
  Transmission Date: 20150821
  Serious: Yes (Hospitalization)
  Sender: FDA-Public Use
  Company Number: FI-PFIZER INC-2015203583

PATIENT
  Age: 62 Year
  Sex: Male

DRUGS (24)
  1. CRESTOR [Suspect]
     Active Substance: ROSUVASTATIN CALCIUM
     Indication: HYPERCHOLESTEROLAEMIA
     Dosage: 40 MG, DAILY
     Route: 048
     Dates: start: 20080908, end: 20150513
  2. PLENDIL [Concomitant]
     Active Substance: FELODIPINE
     Dosage: 10 MG, DAILY
     Route: 048
     Dates: start: 20110405
  3. TRADOLAN [Concomitant]
     Active Substance: TRAMADOL
     Dosage: 100 MG 1/2-1 TABLET 1-2XDAILY
     Dates: start: 20130405
  4. PLAVIX [Concomitant]
     Active Substance: CLOPIDOGREL BISULFATE
     Dosage: 75 MG, DAILY
     Route: 048
     Dates: start: 20130725
  5. LYRICA [Suspect]
     Active Substance: PREGABALIN
     Indication: PAIN
     Dosage: 75 MG, 2X/DAY
     Route: 048
     Dates: start: 201305, end: 201409
  6. PRIMASPAN [Concomitant]
     Dosage: 100 MG, DAILY
     Route: 048
     Dates: start: 20071031
  7. SOMAC [Concomitant]
     Active Substance: PANTOPRAZOLE SODIUM
     Dosage: 40 MG, DAILY
     Dates: start: 20130725
  8. DINIT [Concomitant]
     Active Substance: ISOSORBIDE DINITRATE
     Dosage: 1.25 MG/DOSE 1-3X WHEN NEEDED
     Dates: start: 20080102
  9. EZETROL [Concomitant]
     Active Substance: EZETIMIBE
     Dosage: 10 MG, DAILY
     Route: 048
     Dates: start: 20070913
  10. TRADJENTA [Concomitant]
     Active Substance: LINAGLIPTIN
     Dosage: 5 MG, DAILY
     Route: 048
     Dates: start: 20141218
  11. LANTUS [Concomitant]
     Active Substance: INSULIN GLARGINE
     Dosage: 100 U7ML, 40 UNITS AT EVENINGS
     Route: 058
     Dates: start: 20071011
  12. TENOX [Concomitant]
     Active Substance: TEMAZEPAM
     Dosage: 20 MG, DAILY
     Route: 048
     Dates: start: 20130728
  13. MIRTAZAPINE. [Concomitant]
     Active Substance: MIRTAZAPINE
     Dosage: 15 MG, 1-2X1
     Route: 048
     Dates: start: 20120803
  14. NOVORAPID [Concomitant]
     Active Substance: INSULIN ASPART
     Dosage: 100U/ML, 10 UNITS 3XDAILY
     Route: 058
     Dates: start: 20080102
  15. PANADOL FORTE [Concomitant]
     Active Substance: ACETAMINOPHEN\CAFFEINE
     Dosage: 1 G, 1-3 TIMES DAILY
     Route: 048
     Dates: start: 20130725
  16. METOHEXAL [Concomitant]
     Active Substance: METOPROLOL SUCCINATE
     Dosage: 95 MG, 2X/DAY
  17. FINASTERID ORION [Concomitant]
     Dosage: 5 MG, DAILY
     Route: 048
     Dates: start: 20150408
  18. LYRICA [Suspect]
     Active Substance: PREGABALIN
     Dosage: 150 MG+ 75 MG DAILY
     Route: 048
     Dates: start: 201409
  19. NORSPAN [Suspect]
     Active Substance: BUPRENORPHINE
     Indication: PAIN
     Dosage: 120 ?G, DAILY
     Route: 062
     Dates: start: 20150506, end: 20150513
  20. ISANGINA [Concomitant]
     Dosage: 50 MG, DAILY
     Route: 048
     Dates: start: 20110927
  21. OMNIC [Concomitant]
     Active Substance: TAMSULOSIN HYDROCHLORIDE
     Dosage: 0.4 MG, DAILY
     Route: 048
     Dates: start: 20110405
  22. SIRDALUD [Concomitant]
     Active Substance: TIZANIDINE
     Dosage: 2 MG 1-3XDAILY FOR SEVERAL DAYS
     Dates: start: 20150325
  23. COZAAR COMP [Concomitant]
     Active Substance: HYDROCHLOROTHIAZIDE\LOSARTAN POTASSIUM
     Dosage: 50/12.5 MG MG DAILY
     Route: 048
     Dates: start: 20130725
  24. KALEORID [Concomitant]
     Active Substance: POTASSIUM CHLORIDE
     Dosage: 1 G, 2X/DAY
     Route: 048
     Dates: start: 20110405

REACTIONS (5)
  - Back pain [Unknown]
  - Movement disorder [Unknown]
  - Muscle disorder [Recovering/Resolving]
  - Rhabdomyolysis [Recovering/Resolving]
  - Gait disturbance [Unknown]

NARRATIVE: CASE EVENT DATE: 201409
